FAERS Safety Report 16933991 (Version 2)
Quarter: 2019Q4

REPORT INFORMATION
  Report Type: Report from Study
  Country: FR (occurrence: FR)
  Receive Date: 20191018
  Receipt Date: 20191104
  Transmission Date: 20200122
  Serious: Yes (Other)
  Sender: FDA-Public Use
  Company Number: FR-JAZZ-2019-FR-014364

PATIENT

DRUGS (4)
  1. TIENAM [Concomitant]
     Active Substance: CILASTATIN SODIUM\IMIPENEM
     Indication: PROPHYLAXIS
     Dosage: 3 G DAILY DOSE
     Route: 042
     Dates: start: 20170918, end: 20171004
  2. ACICLOVIR [Concomitant]
     Active Substance: ACYCLOVIR
     Indication: HERPES ZOSTER
     Dosage: 1.5 G, DAILY DOSE
     Route: 042
     Dates: start: 20170929, end: 20171011
  3. DEFITELIO [Suspect]
     Active Substance: DEFIBROTIDE SODIUM
     Indication: VENOOCCLUSIVE LIVER DISEASE
     Dosage: 25 MG/KG, PER DAY
     Route: 042
     Dates: start: 20170925, end: 20171022
  4. DELURSAN [Suspect]
     Active Substance: URSODIOL
     Indication: PROPHYLAXIS
     Dosage: 1.5 G,DAILY DOSE
     Route: 048
     Dates: start: 20170911, end: 20190120

REACTIONS (4)
  - Coagulopathy [Unknown]
  - Acute lymphocytic leukaemia recurrent [Unknown]
  - Chronic graft versus host disease [Unknown]
  - Haemorrhage [Recovered/Resolved]

NARRATIVE: CASE EVENT DATE: 20171004
